FAERS Safety Report 20138056 (Version 1)
Quarter: 2021Q4

REPORT INFORMATION
  Report Type: Spontaneous
  Country: CN (occurrence: CN)
  Receive Date: 20211202
  Receipt Date: 20211202
  Transmission Date: 20220303
  Serious: Yes (Other)
  Sender: FDA-Public Use
  Company Number: CN-ABBVIE-21K-035-4180439-00

PATIENT
  Age: 75 Year
  Sex: Female

DRUGS (5)
  1. VALPROIC ACID [Suspect]
     Active Substance: VALPROIC ACID
     Indication: Seizure prophylaxis
     Route: 048
     Dates: start: 20211105, end: 20211111
  2. SODIUM CHLORIDE [Concomitant]
     Active Substance: SODIUM CHLORIDE
     Indication: Product used for unknown indication
     Dates: start: 20211105, end: 20211109
  3. OMEPRAZOLE SODIUM [Concomitant]
     Active Substance: OMEPRAZOLE SODIUM
     Indication: Product used for unknown indication
     Dates: start: 20211105
  4. DEZOCINE [Concomitant]
     Active Substance: DEZOCINE
     Indication: Product used for unknown indication
     Dates: start: 20211104, end: 20211109
  5. DEPROTEINISED CALF BLOOD SERUM INJECTION [Concomitant]
     Indication: Product used for unknown indication
     Dates: start: 20211105, end: 20211109

REACTIONS (1)
  - Dermatitis allergic [Recovering/Resolving]

NARRATIVE: CASE EVENT DATE: 20211110
